FAERS Safety Report 8019029 (Version 66)
Quarter: 2022Q1

REPORT INFORMATION
  Report Type: Report from Study
  Country: CA (occurrence: CA)
  Receive Date: 20110701
  Receipt Date: 20220303
  Transmission Date: 20220423
  Serious: Yes (Other)
  Sender: FDA-Public Use
  Company Number: PHHY2011CA11428

PATIENT
  Age: 65 Year
  Sex: Female
  Weight: 49.433 kg

DRUGS (17)
  1. SANDOSTATIN [Suspect]
     Active Substance: OCTREOTIDE ACETATE
     Indication: Medullary thyroid cancer
     Dosage: 50 UG, UNK
     Route: 058
  2. SANDOSTATIN [Suspect]
     Active Substance: OCTREOTIDE ACETATE
     Dosage: 100 UG, BID
     Route: 058
     Dates: end: 20120223
  3. SANDOSTATIN [Suspect]
     Active Substance: OCTREOTIDE ACETATE
  4. SANDOSTATIN LAR DEPOT [Suspect]
     Active Substance: OCTREOTIDE ACETATE
     Indication: Medullary thyroid cancer
     Dosage: 30 MG, QMO (EVERY 4 WEEKS)
     Route: 030
     Dates: start: 20040713, end: 20070306
  5. SANDOSTATIN LAR DEPOT [Suspect]
     Active Substance: OCTREOTIDE ACETATE
     Indication: Carcinoid tumour
     Dosage: 20 MG, QMO (EVERY 4 WEEKS)
     Route: 030
     Dates: start: 20110124
  6. SANDOSTATIN LAR DEPOT [Suspect]
     Active Substance: OCTREOTIDE ACETATE
     Dosage: 30 MG, QMO
     Route: 030
     Dates: start: 20110209
  7. SANDOSTATIN LAR DEPOT [Suspect]
     Active Substance: OCTREOTIDE ACETATE
     Dosage: 30 MG, TIW (EVERY 3 WEEKS)
     Route: 030
     Dates: start: 20110610
  8. SANDOSTATIN LAR DEPOT [Suspect]
     Active Substance: OCTREOTIDE ACETATE
     Dosage: 30 MG, QMO (EVERY 4 WEEKS)
     Route: 030
     Dates: start: 20130709
  9. SANDOSTATIN LAR DEPOT [Suspect]
     Active Substance: OCTREOTIDE ACETATE
     Dosage: UNK
     Route: 030
     Dates: start: 201612
  10. SANDOSTATIN LAR DEPOT [Suspect]
     Active Substance: OCTREOTIDE ACETATE
     Dosage: 30 MG, QMO (EVERY 4 WEEKS)
     Route: 030
     Dates: start: 20190705
  11. CAPRELSA [Concomitant]
     Active Substance: VANDETANIB
     Indication: Product used for unknown indication
     Dosage: UNK
     Route: 065
  12. ROCALTROL [Concomitant]
     Active Substance: CALCITRIOL
     Indication: Product used for unknown indication
     Dosage: 25 MG, QD
     Route: 048
  13. LEVOTHYROXINE [Concomitant]
     Active Substance: LEVOTHYROXINE
     Indication: Product used for unknown indication
     Dosage: 0.15 MG, QD
     Route: 048
  14. CALCIUM [Concomitant]
     Active Substance: CALCIUM
     Indication: Product used for unknown indication
     Dosage: UNK, BID (LIQUID CAPSULES)
     Route: 065
  15. CELEBREX [Concomitant]
     Active Substance: CELECOXIB
     Indication: Product used for unknown indication
     Dosage: QD (SOMETIMES BID)
     Route: 048
  16. ULTIMATE PLUS [Concomitant]
     Indication: Product used for unknown indication
     Dosage: UNK
     Route: 065
  17. SYNTHROID [Concomitant]
     Active Substance: LEVOTHYROXINE SODIUM
     Indication: Product used for unknown indication
     Dosage: UNK
     Route: 065

REACTIONS (76)
  - Blood pressure decreased [Unknown]
  - Haemorrhoids [Unknown]
  - Rectal haemorrhage [Recovering/Resolving]
  - Anorectal discomfort [Recovering/Resolving]
  - Diarrhoea [Not Recovered/Not Resolved]
  - Erythema [Unknown]
  - Haematoma [Unknown]
  - Weight decreased [Unknown]
  - Nervousness [Recovering/Resolving]
  - Lymph node pain [Unknown]
  - Pain [Unknown]
  - Cough [Recovering/Resolving]
  - Dry eye [Unknown]
  - Oral discomfort [Unknown]
  - Depressed mood [Unknown]
  - Hypoaesthesia [Unknown]
  - Back pain [Unknown]
  - Musculoskeletal chest pain [Recovering/Resolving]
  - Dermatitis acneiform [Unknown]
  - Lymphadenopathy [Unknown]
  - Muscular weakness [Unknown]
  - Vision blurred [Unknown]
  - Acne [Unknown]
  - Skin discolouration [Unknown]
  - Arthritis [Unknown]
  - Joint swelling [Unknown]
  - Gastrointestinal bacterial overgrowth [Unknown]
  - Petechiae [Unknown]
  - Urinary tract infection [Not Recovered/Not Resolved]
  - Bladder pain [Unknown]
  - Osteoarthritis [Unknown]
  - Upper respiratory tract infection [Recovering/Resolving]
  - Dysphonia [Not Recovered/Not Resolved]
  - Flushing [Unknown]
  - Orthostatic hypotension [Unknown]
  - Arthralgia [Recovering/Resolving]
  - Myalgia [Recovering/Resolving]
  - Paraesthesia [Recovered/Resolved]
  - Feeling abnormal [Unknown]
  - Flank pain [Unknown]
  - Sensory disturbance [Unknown]
  - Dysstasia [Unknown]
  - Sciatic nerve injury [Unknown]
  - Fall [Unknown]
  - Frustration tolerance decreased [Unknown]
  - Musculoskeletal discomfort [Unknown]
  - Limb discomfort [Unknown]
  - Mobility decreased [Unknown]
  - Crying [Unknown]
  - Pain in extremity [Unknown]
  - Abdominal tenderness [Recovering/Resolving]
  - Dyspnoea [Recovered/Resolved]
  - Nausea [Unknown]
  - Dizziness [Unknown]
  - Abdominal distension [Recovering/Resolving]
  - Alopecia [Unknown]
  - Pruritus [Unknown]
  - Rash [Not Recovered/Not Resolved]
  - Abdominal pain upper [Unknown]
  - Asthenia [Unknown]
  - Fatigue [Unknown]
  - Gingivitis [Unknown]
  - Injection site erythema [Unknown]
  - Injection site pain [Recovered/Resolved]
  - Injection site mass [Recovered/Resolved]
  - Injection site discomfort [Unknown]
  - Injection site mass [Unknown]
  - Injection site pain [Unknown]
  - Cholelithiasis [Unknown]
  - Headache [Unknown]
  - Needle issue [Unknown]
  - Thyroid hormones decreased [Unknown]
  - Underdose [Unknown]
  - Product use in unapproved indication [Unknown]
  - Wrong technique in product usage process [Unknown]
  - Inappropriate schedule of product administration [Unknown]

NARRATIVE: CASE EVENT DATE: 20040713
